FAERS Safety Report 5982630-9 (Version None)
Quarter: 2008Q4

REPORT INFORMATION
  Report Type: 
  Country: None (occurrence: None)
  Receive Date: 20081208
  Receipt Date: 20081204
  Transmission Date: 20090506
  Serious: Yes (Death)
  Sender: FDA-Public Use
  Company Number: PHHY2008NZ29352

PATIENT
  Sex: Male

DRUGS (2)
  1. CLOZARIL [Suspect]
     Indication: SCHIZOPHRENIA
     Dosage: 450 MG NOCTE
     Dates: start: 20080806
  2. HALOPERIDOL [Concomitant]
     Dosage: 25 MG, QMO
     Route: 030

REACTIONS (5)
  - COMPLETED SUICIDE [None]
  - INTENTIONAL OVERDOSE [None]
  - MULTIPLE DRUG OVERDOSE INTENTIONAL [None]
  - NEUTROPENIA [None]
  - NO THERAPEUTIC RESPONSE [None]
